APPROVED DRUG PRODUCT: VARUBI
Active Ingredient: ROLAPITANT HYDROCHLORIDE
Strength: EQ 166.5MG BASE/92.5ML (EQ 1.8MG BASE/ML)
Dosage Form/Route: EMULSION;INTRAVENOUS
Application: N208399 | Product #001
Applicant: TERSERA THERAPEUTICS LLC
Approved: Oct 25, 2017 | RLD: Yes | RS: No | Type: DISCN

PATENTS:
Patent 8470842 | Expires: Jan 18, 2029
Patent 9101615 | Expires: Jul 14, 2032
Patent 7981905 | Expires: Apr 4, 2027
Patent 8404702 | Expires: Apr 4, 2027
Patent 7049320 | Expires: Aug 19, 2028
Patent 8178550 | Expires: Apr 4, 2027